FAERS Safety Report 4537143-8 (Version None)
Quarter: 2004Q4

REPORT INFORMATION
  Report Type: 
  Country: None (occurrence: None)
  Receive Date: 20041223
  Receipt Date: 20041207
  Transmission Date: 20050328
  Serious: Yes (Hospitalization)
  Sender: FDA-Public Use
  Company Number: PHHO2004DE17395

PATIENT
  Sex: Female
  Weight: 66 kg

DRUGS (4)
  1. FTY720 VS MYCOPHENOLATE MOFETIL [Suspect]
     Indication: RENAL TRANSPLANT
     Dosage: CODE NOT BROKEN
     Route: 048
     Dates: start: 20040707, end: 20041126
  2. NEORAL [Suspect]
     Indication: RENAL TRANSPLANT
     Dosage: 175 MG / DAY
     Route: 048
     Dates: start: 20040707, end: 20041126
  3. STEROIDS NOS [Concomitant]
     Indication: RENAL TRANSPLANT
     Dosage: NOT REPORTED
     Route: 048
  4. STEROIDS NOS [Concomitant]
     Dosage: 15 MG / DAY
     Route: 048

REACTIONS (16)
  - APHASIA [None]
  - BRAIN OEDEMA [None]
  - CEREBELLAR ATAXIA [None]
  - CEREBELLAR SYNDROME [None]
  - DIFFICULTY IN WALKING [None]
  - DYSARTHRIA [None]
  - DYSSTASIA [None]
  - EXTENSOR PLANTAR RESPONSE [None]
  - FACIAL PARESIS [None]
  - GASTROINTESTINAL INFECTION [None]
  - HEMIPARESIS [None]
  - INFLAMMATION [None]
  - MUSCULAR WEAKNESS [None]
  - NERVOUS SYSTEM DISORDER [None]
  - STRABISMUS [None]
  - VERTIGO [None]
